FAERS Safety Report 19284705 (Version 1)
Quarter: 2021Q2

REPORT INFORMATION
  Report Type: Spontaneous
  Country: US (occurrence: US)
  Receive Date: 20210521
  Receipt Date: 20210521
  Transmission Date: 20210717
  Serious: No
  Sender: FDA-Public Use
  Company Number: None

PATIENT
  Age: 80 Year
  Weight: 97.2 kg

DRUGS (21)
  1. VOTRIENT [Suspect]
     Active Substance: PAZOPANIB HYDROCHLORIDE
     Indication: RENAL CANCER
     Route: 048
     Dates: start: 20180525, end: 20210521
  2. CARVEDILOL. [Concomitant]
     Active Substance: CARVEDILOL
  3. GLUCOSAMINE HCL [Concomitant]
     Active Substance: GLUCOSAMINE
  4. TRAZODONE HYDROCHLORIDE. [Concomitant]
     Active Substance: TRAZODONE HYDROCHLORIDE
  5. AMLODIPINE BESYLATE. [Concomitant]
     Active Substance: AMLODIPINE BESYLATE
  6. ISOSORBIDE MONONITRATE ER [Concomitant]
     Active Substance: ISOSORBIDE MONONITRATE
  7. IPRATROPIUM BROMIDE. [Concomitant]
     Active Substance: IPRATROPIUM BROMIDE
  8. INCRUSE ELLIPTA [Concomitant]
     Active Substance: UMECLIDINIUM BROMIDE
  9. TESSALON [Concomitant]
     Active Substance: BENZONATATE
  10. ADVAIR DISKUS [Concomitant]
     Active Substance: FLUTICASONE PROPIONATE\SALMETEROL XINAFOATE
  11. EPLERENONE. [Concomitant]
     Active Substance: EPLERENONE
  12. IRBESARTAN. [Concomitant]
     Active Substance: IRBESARTAN
  13. PLAVIX [Concomitant]
     Active Substance: CLOPIDOGREL BISULFATE
  14. TURMERIC [Concomitant]
     Active Substance: HERBALS\TURMERIC
  15. ASPIRIN 81 [Concomitant]
     Active Substance: ASPIRIN
  16. FINASTERIDE. [Concomitant]
     Active Substance: FINASTERIDE
  17. SERTRALINE HCL [Concomitant]
     Active Substance: SERTRALINE HYDROCHLORIDE
  18. TAMSULOSIN HCL [Concomitant]
     Active Substance: TAMSULOSIN HYDROCHLORIDE
  19. CYCLOBENZAPRINE HCL [Concomitant]
     Active Substance: CYCLOBENZAPRINE HYDROCHLORIDE
  20. GLIMEPIRIDE. [Concomitant]
     Active Substance: GLIMEPIRIDE
  21. NORCO [Concomitant]
     Active Substance: ACETAMINOPHEN\HYDROCODONE BITARTRATE

REACTIONS (1)
  - Disease progression [None]

NARRATIVE: CASE EVENT DATE: 20210521
